FAERS Safety Report 7081375-4 (Version None)
Quarter: 2010Q4

REPORT INFORMATION
  Report Type: 
  Country: None (occurrence: None)
  Receive Date: 20101103
  Receipt Date: 20101028
  Transmission Date: 20110411
  Serious: Yes (Death)
  Sender: FDA-Public Use
  Company Number: PHHY2010JP64650

PATIENT
  Age: 69 Year
  Sex: Male

DRUGS (4)
  1. NEORAL [Suspect]
     Indication: APLASTIC ANAEMIA
     Route: 048
  2. TAKEPRON [Concomitant]
     Dosage: 30 MG, UNK
     Route: 048
  3. DIFLUCAN [Concomitant]
     Dosage: 200 MG, UNK
     Route: 048
  4. HABEKACIN [Concomitant]
     Dosage: 150 MG, UNK
     Route: 042
     Dates: start: 20100910, end: 20100919

REACTIONS (4)
  - APLASTIC ANAEMIA [None]
  - BLOOD CREATININE INCREASED [None]
  - CONDITION AGGRAVATED [None]
  - RENAL IMPAIRMENT [None]
